FAERS Safety Report 6605088-5 (Version None)
Quarter: 2010Q1

REPORT INFORMATION
  Report Type: 
  Country: None (occurrence: None)
  Receive Date: 20100226
  Receipt Date: 20100217
  Transmission Date: 20100710
  Serious: Yes (Hospitalization)
  Sender: FDA-Public Use
  Company Number: GXKR2010IN01938

PATIENT
  Age: 3 Month
  Sex: Male

DRUGS (4)
  1. DIGOXIN (NGX) [Suspect]
     Indication: CARDIAC FAILURE CONGESTIVE
     Dosage: 10 UG/KG/DAY
     Route: 065
  2. FUROSEMIDE (NGX) [Interacting]
     Indication: CARDIAC FAILURE CONGESTIVE
     Dosage: 1 MG/KG/DAY
     Route: 065
  3. SPIRONOLACTONE (NGX) [Interacting]
     Indication: CARDIAC FAILURE CONGESTIVE
     Dosage: 1 MG/KG/DAY
     Route: 065
  4. ENALAPRIL (NGX) [Interacting]
     Indication: CARDIAC FAILURE CONGESTIVE
     Dosage: 0.3 MG/KG/DAY
     Route: 065

REACTIONS (6)
  - ELECTROCARDIOGRAM ABNORMAL [None]
  - GENERALISED OEDEMA [None]
  - HYPERKALAEMIA [None]
  - RENAL FAILURE [None]
  - THERAPEUTIC AGENT TOXICITY [None]
  - URINE OUTPUT DECREASED [None]
